FAERS Safety Report 7762752-2 (Version None)
Quarter: 2011Q3

REPORT INFORMATION
  Report Type: 
  Country: None (occurrence: None)
  Receive Date: 20110825
  Receipt Date: 20110630
  Transmission Date: 20111222
  Serious: No
  Sender: FDA-Public Use
  Company Number: 331275

PATIENT
  Age: 48 Year
  Sex: Female

DRUGS (3)
  1. PRILOSEC [Concomitant]
  2. TOPRAL /00586501/ (SULTOPRIDE) [Concomitant]
  3. VICTOZA [Suspect]
     Indication: TYPE 2 DIABETES MELLITUS
     Dosage: SUBCUTANEOUS
     Route: 058
     Dates: start: 20110201, end: 20110630

REACTIONS (1)
  - RASH GENERALISED [None]
